FAERS Safety Report 22396663 (Version 1)
Quarter: 2023Q2

REPORT INFORMATION
  Report Type: Spontaneous
  Country: US (occurrence: US)
  Receive Date: 20230601
  Receipt Date: 20230601
  Transmission Date: 20230722
  Serious: No
  Sender: FDA-Public Use
  Company Number: US-APIL-2313397US

PATIENT

DRUGS (1)
  1. RESTASIS [Suspect]
     Active Substance: CYCLOSPORINE
     Indication: Product used for unknown indication

REACTIONS (8)
  - Erythema of eyelid [Unknown]
  - Ocular hyperaemia [Unknown]
  - Photophobia [Unknown]
  - Swelling of eyelid [Unknown]
  - Hypersensitivity [Unknown]
  - Product quality issue [Unknown]
  - Eye pain [Unknown]
  - Foreign body sensation in eyes [Unknown]
